FAERS Safety Report 8168042-0 (Version None)
Quarter: 2012Q1

REPORT INFORMATION
  Report Type: 
  Country: None (occurrence: None)
  Receive Date: 20120227
  Receipt Date: 20120220
  Transmission Date: 20120608
  Serious: Yes (Hospitalization)
  Sender: FDA-Public Use
  Company Number: PHHY2012FR004338

PATIENT
  Sex: Female

DRUGS (10)
  1. BETASERC [Concomitant]
     Dosage: UNK UKN, UNK
  2. LYRICA [Concomitant]
     Dosage: UNK UKN, UNK
  3. TROSPIUM CHLORIDE [Concomitant]
     Dosage: UNK UKN, UNK
  4. NEXIUM [Concomitant]
  5. CLONAZEPAM [Concomitant]
  6. GILENYA [Suspect]
     Indication: MULTIPLE SCLEROSIS
     Dosage: 0.5 MG, DAILY
     Route: 048
     Dates: start: 20120117, end: 20120117
  7. DITROPAN [Concomitant]
     Dosage: UNK UKN, UNK
  8. OMIX [Concomitant]
  9. VALACYCLOVIR HYDROCHLORIDE [Concomitant]
  10. TANGANIL [Concomitant]
     Dosage: UNK UKN, UNK

REACTIONS (5)
  - DYSPNOEA [None]
  - HEART RATE DECREASED [None]
  - SENSE OF OPPRESSION [None]
  - ATRIOVENTRICULAR BLOCK SECOND DEGREE [None]
  - TACHYCARDIA [None]
